FAERS Safety Report 12416458 (Version 2)
Quarter: 2016Q2

REPORT INFORMATION
  Report Type: Spontaneous
  Country: CN (occurrence: CN)
  Receive Date: 20160530
  Receipt Date: 20160620
  Transmission Date: 20160815
  Serious: Yes (Other)
  Sender: FDA-Public Use
  Company Number: CN-JNJFOC-20131101937

PATIENT

DRUGS (2)
  1. TOPAMAX [Suspect]
     Active Substance: TOPIRAMATE
     Indication: EPILEPSY
     Route: 048
  2. TOPAMAX [Suspect]
     Active Substance: TOPIRAMATE
     Indication: EPILEPSY
     Dosage: 100-200MG/DAY
     Route: 048

REACTIONS (7)
  - Hepatic function abnormal [Unknown]
  - Renal impairment [Unknown]
  - Drug ineffective [Unknown]
  - Headache [Unknown]
  - Rash [Unknown]
  - Abdominal discomfort [Unknown]
  - Dizziness [Unknown]
